FAERS Safety Report 6892447-9 (Version None)
Quarter: 2010Q3

REPORT INFORMATION
  Report Type: 
  Country: None (occurrence: None)
  Receive Date: 20100731
  Receipt Date: 20080524
  Transmission Date: 20110219
  Serious: No
  Sender: FDA-Public Use
  Company Number: US-PFIZER INC-2008030682

PATIENT
  Sex: Female
  Weight: 58.97 kg

DRUGS (4)
  1. AMLODIPINE [Suspect]
     Indication: HYPERTENSION
     Route: 048
     Dates: start: 20061201
  2. LISINOPRIL [Concomitant]
  3. EVISTA [Concomitant]
  4. ALL OTHER THERAPEUTIC PRODUCTS [Concomitant]
     Indication: GLAUCOMA

REACTIONS (2)
  - HYPOPHAGIA [None]
  - OEDEMA PERIPHERAL [None]
